FAERS Safety Report 8378629-8 (Version None)
Quarter: 2012Q2

REPORT INFORMATION
  Report Type: 
  Country: None (occurrence: None)
  Receive Date: 20120522
  Receipt Date: 20110627
  Transmission Date: 20120825
  Serious: No
  Sender: FDA-Public Use
  Company Number: US-ASTRAZENECA-2011SE38870

PATIENT
  Sex: Female

DRUGS (2)
  1. ESOFEX [Concomitant]
  2. PRILOSEC [Suspect]
     Route: 048

REACTIONS (4)
  - MEMORY IMPAIRMENT [None]
  - OESOPHAGEAL DISORDER [None]
  - TREATMENT NONCOMPLIANCE [None]
  - GASTROOESOPHAGEAL REFLUX DISEASE [None]
